FAERS Safety Report 15331434 (Version 1)
Quarter: 2018Q4

REPORT INFORMATION
  Report Type: Spontaneous
  Country: FR (occurrence: FR)
  Receive Date: 20180829
  Receipt Date: 20180829
  Transmission Date: 20190204
  Serious: Yes (Hospitalization)
  Sender: FDA-Public Use
  Company Number: FR-TEVA-2018-FR-873708

PATIENT
  Age: 85 Year
  Sex: Female

DRUGS (5)
  1. BIPRETERAX [Suspect]
     Active Substance: INDAPAMIDE\PERINDOPRIL
     Indication: HYPERTENSION
     Route: 048
     Dates: end: 20171201
  2. FLUVOXAMINE (MALEATE DE) [Suspect]
     Active Substance: FLUVOXAMINE MALEATE
     Route: 048
     Dates: end: 20171201
  3. TRIMETAZIDINE (DICHLORHYDRATE DE) [Suspect]
     Active Substance: TRIMETAZIDINE
     Route: 048
     Dates: end: 20180105
  4. ESOMEPRAZOLE. [Suspect]
     Active Substance: ESOMEPRAZOLE MAGNESIUM
     Route: 048
     Dates: end: 20171201
  5. FLUVASTATINE BASE [Suspect]
     Active Substance: FLUVASTATIN SODIUM
     Route: 048
     Dates: end: 20171201

REACTIONS (1)
  - Pancreatitis acute [Recovered/Resolved]

NARRATIVE: CASE EVENT DATE: 20171203
